FAERS Safety Report 6445574-4 (Version None)
Quarter: 2009Q4

REPORT INFORMATION
  Report Type: 
  Country: None (occurrence: None)
  Receive Date: 20091112
  Receipt Date: 20091030
  Transmission Date: 20100525
  Serious: Yes (Hospitalization)
  Sender: FDA-Public Use
  Company Number: 8054024

PATIENT
  Age: 74 Year
  Sex: Female

DRUGS (15)
  1. CIMZIA [Suspect]
     Indication: CROHN'S DISEASE
     Dosage: 400 MG SC
     Route: 058
     Dates: start: 20090925
  2. VANCOCIN HYDROCHLORIDE [Concomitant]
  3. NOVOLOG [Concomitant]
  4. LEVEMIR [Concomitant]
  5. AMIODARONE HCL [Concomitant]
  6. RAMIPRIL [Concomitant]
  7. LEVOTHYROXINE SODIUM [Concomitant]
  8. PREDNISONE [Concomitant]
  9. ASPIRIN [Concomitant]
  10. PRILOSEC [Concomitant]
  11. METOPROLOL TARTRATE [Concomitant]
  12. FLORANEX [Concomitant]
  13. FUROSEMIDE [Concomitant]
  14. TRAMADOL HCL [Concomitant]
  15. ZOFRAN [Concomitant]

REACTIONS (2)
  - CROHN'S DISEASE [None]
  - DEHYDRATION [None]
